FAERS Safety Report 19894329 (Version 1)
Quarter: 2021Q3

REPORT INFORMATION
  Report Type: Spontaneous
  Country: US (occurrence: US)
  Receive Date: 20210928
  Receipt Date: 20210928
  Transmission Date: 20211014
  Serious: Yes (Other)
  Sender: FDA-Public Use
  Company Number: None

PATIENT
  Sex: Female
  Weight: 65.25 kg

DRUGS (6)
  1. VITAMIN D3 [Concomitant]
     Active Substance: CHOLECALCIFEROL
  2. CELECOXIB. [Concomitant]
     Active Substance: CELECOXIB
  3. MULTIVITAMIN [Concomitant]
     Active Substance: VITAMINS
  4. EYLEA [Suspect]
     Active Substance: AFLIBERCEPT
     Indication: MACULAR DEGENERATION
     Route: 047
  5. ACYCLOVIR. [Concomitant]
     Active Substance: ACYCLOVIR
  6. VITAMIN B12 [Concomitant]
     Active Substance: CYANOCOBALAMIN

REACTIONS (2)
  - Pelvic pain [None]
  - Bone pain [None]
